FAERS Safety Report 12897899 (Version 1)
Quarter: 2016Q4

REPORT INFORMATION
  Report Type: Spontaneous
  Country: US (occurrence: US)
  Receive Date: 20161028
  Receipt Date: 20161028
  Transmission Date: 20170207
  Serious: No
  Sender: FDA-Public Use
  Company Number: None

PATIENT
  Sex: Male

DRUGS (1)
  1. SIROLIMUS 1MG GREENSTONE [Suspect]
     Active Substance: SIROLIMUS
     Indication: RENAL TRANSPLANT
     Dosage: ALTERNATING 1MG WITH 2MG EVERY OTHER DAY QD PO
     Route: 048
     Dates: start: 20160614

REACTIONS (4)
  - Chills [None]
  - Hot flush [None]
  - Increased tendency to bruise [None]
  - Dysgeusia [None]
